FAERS Safety Report 9515902 (Version 1)
Quarter: 2013Q1

REPORT INFORMATION
  Report Type: Spontaneous
  Country: US (occurrence: None)
  Receive Date: 20130305
  Receipt Date: 20130305
  Transmission Date: 20140127
  Serious: Yes (Other)
  Sender: FDA-Public Use
  Company Number: 163-21880-12080956

PATIENT
  Age: 90 Year
  Sex: Female

DRUGS (3)
  1. REVLIMID (LENALIDOMIDE) (CAPSULES) [Suspect]
     Indication: MYELODYSPLASTIC SYNDROME
     Dosage: 5MG, 21IN 28 D, PO?
     Route: 048
     Dates: start: 201204
  2. LEVOTHYROXINE (LEVOTHYROXINE) (UNKNOWN) [Concomitant]
  3. VICODIN (VICODIN) (UNKNOWN) [Concomitant]

REACTIONS (6)
  - Hypersensitivity [None]
  - Rash [None]
  - Pruritus [None]
  - Periorbital oedema [None]
  - Diarrhoea [None]
  - Headache [None]
